FAERS Safety Report 8296792-4 (Version None)
Quarter: 2012Q2

REPORT INFORMATION
  Report Type: 
  Country: None (occurrence: None)
  Receive Date: 20120419
  Receipt Date: 20110922
  Transmission Date: 20120825
  Serious: No
  Sender: FDA-Public Use
  Company Number: US-ASTRAZENECA-2009SE15839

PATIENT
  Age: 47 Year
  Sex: Female
  Weight: 66.7 kg

DRUGS (9)
  1. ZOMIG [Suspect]
     Route: 048
  2. XANAX [Concomitant]
  3. EFFEXOR [Concomitant]
  4. NEXIUM [Suspect]
     Indication: GASTRIC ULCER
     Route: 048
     Dates: start: 20100901
  5. ZOMIG [Suspect]
     Route: 048
  6. SEROQUEL [Suspect]
     Indication: INSOMNIA
     Route: 048
     Dates: start: 20080101
  7. THORAZINE [Concomitant]
  8. SEROQUEL [Suspect]
     Dosage: 400 TO 600 MG AT NIGHT
     Route: 048
  9. ZOMIG [Suspect]
     Indication: MIGRAINE
     Route: 048
     Dates: start: 20110201

REACTIONS (8)
  - PHOTOPHOBIA [None]
  - GASTRIC ULCER [None]
  - MIGRAINE [None]
  - HEADACHE [None]
  - DRUG INEFFECTIVE [None]
  - INSOMNIA [None]
  - NASOPHARYNGITIS [None]
  - OFF LABEL USE [None]
